FAERS Safety Report 20378793 (Version 1)
Quarter: 2022Q1

REPORT INFORMATION
  Report Type: Spontaneous
  Country: US (occurrence: None)
  Receive Date: 20220126
  Receipt Date: 20220126
  Transmission Date: 20220423
  Serious: Yes (Hospitalization)
  Sender: FDA-Public Use
  Company Number: None

PATIENT
  Sex: Female
  Weight: 54.74 kg

DRUGS (1)
  1. TAXOL [Suspect]
     Active Substance: PACLITAXEL
     Dates: end: 20211223

REACTIONS (10)
  - Asthenia [None]
  - Fatigue [None]
  - Nausea [None]
  - Vomiting [None]
  - Hypokalaemia [None]
  - Hypomagnesaemia [None]
  - Tachycardia [None]
  - Troponin increased [None]
  - Hypophagia [None]
  - Fibrin D dimer increased [None]

NARRATIVE: CASE EVENT DATE: 20211228
